FAERS Safety Report 20068823 (Version 1)
Quarter: 2021Q4

REPORT INFORMATION
  Report Type: Spontaneous
  Country: ES (occurrence: ES)
  Receive Date: 20211115
  Receipt Date: 20211115
  Transmission Date: 20220303
  Serious: Yes (Life-Threatening, Other)
  Sender: FDA-Public Use
  Company Number: None

PATIENT
  Age: 26 Day
  Sex: Female

DRUGS (1)
  1. CYTOTEC [Suspect]
     Active Substance: MISOPROSTOL
     Dosage: 50UG (FREQ:2 {TOTAL});
     Dates: start: 20210923, end: 20211001

REACTIONS (2)
  - Foetal exposure during delivery [Recovering/Resolving]
  - Neonatal hypoxia [Recovering/Resolving]

NARRATIVE: CASE EVENT DATE: 20211001
